FAERS Safety Report 21143793 (Version 1)
Quarter: 2022Q3

REPORT INFORMATION
  Report Type: Spontaneous
  Country: US (occurrence: None)
  Receive Date: 20220728
  Receipt Date: 20220728
  Transmission Date: 20221027
  Serious: Yes (Life-Threatening, Hospitalization)
  Sender: FDA-Public Use
  Company Number: None

PATIENT
  Age: 62 Year
  Sex: Female
  Weight: 81.6 kg

DRUGS (2)
  1. FENTANYL [Suspect]
     Active Substance: FENTANYL
  2. DEVICE [Suspect]
     Active Substance: DEVICE

REACTIONS (3)
  - Back pain [None]
  - Dizziness [None]
  - Miosis [None]

NARRATIVE: CASE EVENT DATE: 20220712
